FAERS Safety Report 4876084-3 (Version None)
Quarter: 2006Q1

REPORT INFORMATION
  Report Type: 
  Country: None (occurrence: None)
  Receive Date: 20060106
  Receipt Date: 20060106
  Transmission Date: 20060701
  Serious: Yes (Other)
  Sender: FDA-Public Use
  Company Number: None

PATIENT
  Age: 51 Year
  Sex: Female

DRUGS (1)
  1. ALBUMINAR-5 [Suspect]
     Indication: CARDIAC OPERATION
     Dosage: 250 ML 042

REACTIONS (6)
  - HEART RATE INCREASED [None]
  - PHARMACEUTICAL PRODUCT COMPLAINT [None]
  - PROCEDURAL COMPLICATION [None]
  - SHOCK [None]
  - VASODILATION PROCEDURE [None]
  - VENTRICULAR FIBRILLATION [None]
